FAERS Safety Report 9319894 (Version 3)
Quarter: 2013Q3

REPORT INFORMATION
  Report Type: Spontaneous
  Country: AU (occurrence: AU)
  Receive Date: 20130530
  Receipt Date: 20130815
  Transmission Date: 20140515
  Serious: No
  Sender: FDA-Public Use
  Company Number: AU-ASTRAZENECA-2013SE36020

PATIENT
  Age: 19682 Day
  Sex: Male
  Weight: 72 kg

DRUGS (3)
  1. CRESTOR [Suspect]
     Route: 048
     Dates: start: 20080515
  2. DAPSONE [Suspect]
     Indication: LINEAR IGA DISEASE
  3. FISH OIL [Concomitant]

REACTIONS (3)
  - Myoglobin blood present [Recovered/Resolved]
  - Haemoglobin decreased [Unknown]
  - Blood creatinine increased [Recovered/Resolved]
